FAERS Safety Report 12781783 (Version 7)
Quarter: 2017Q1

REPORT INFORMATION
  Report Type: Report from Study
  Country: US (occurrence: US)
  Receive Date: 20160926
  Receipt Date: 20170330
  Transmission Date: 20170428
  Serious: Yes (Hospitalization, Other)
  Sender: FDA-Public Use
  Company Number: US-ACTELION-A-US2016-142655

PATIENT
  Age: 75 Year
  Sex: Female
  Weight: 81.63 kg

DRUGS (7)
  1. UPTRAVI [Suspect]
     Active Substance: SELEXIPAG
     Indication: PULMONARY HYPERTENSION
     Dosage: 1000 MCG, BID
     Route: 048
  2. DILTIAZEM. [Concomitant]
     Active Substance: DILTIAZEM
  3. UPTRAVI [Suspect]
     Active Substance: SELEXIPAG
     Dosage: 800 MCG, BID
     Route: 048
  4. UPTRAVI [Suspect]
     Active Substance: SELEXIPAG
     Dosage: 200 MCG, BID
     Route: 048
     Dates: start: 20160707
  5. OPSUMIT [Concomitant]
     Active Substance: MACITENTAN
     Dosage: UNK
     Route: 048
  6. REVATIO [Concomitant]
     Active Substance: SILDENAFIL CITRATE
     Dosage: UNK
  7. XARELTO [Concomitant]
     Active Substance: RIVAROXABAN

REACTIONS (14)
  - Dehydration [Unknown]
  - Hypoaesthesia [Unknown]
  - Fear [Unknown]
  - Dysphagia [Unknown]
  - Lymphoma [Unknown]
  - Dry mouth [Unknown]
  - Candida infection [Unknown]
  - Dysgeusia [Unknown]
  - Malaise [Unknown]
  - Renal disorder [Unknown]
  - Localised infection [Unknown]
  - Decreased appetite [Unknown]
  - Nausea [Unknown]
  - Diarrhoea [Not Recovered/Not Resolved]

NARRATIVE: CASE EVENT DATE: 2016
